FAERS Safety Report 20364962 (Version 1)
Quarter: 2022Q1

REPORT INFORMATION
  Report Type: Spontaneous
  Country: US (occurrence: US)
  Receive Date: 20220122
  Receipt Date: 20220122
  Transmission Date: 20220423
  Serious: No
  Sender: FDA-Public Use
  Company Number: US-UNITED THERAPEUTICS-UNT-2022-001126

PATIENT
  Sex: Male
  Weight: 74.83 kg

DRUGS (2)
  1. TYVASO [Suspect]
     Active Substance: TREPROSTINIL
     Indication: Pulmonary arterial hypertension
     Dosage: UNK
     Dates: start: 20211206
  2. TYVASO [Suspect]
     Active Substance: TREPROSTINIL
     Dosage: 18-72 ?G, QID

REACTIONS (6)
  - Fatigue [Unknown]
  - Haematoma [Not Recovered/Not Resolved]
  - Feeling abnormal [Unknown]
  - Localised infection [Unknown]
  - Cough [Unknown]
  - Rhinorrhoea [Unknown]
